FAERS Safety Report 23003773 (Version 2)
Quarter: 2024Q1

REPORT INFORMATION
  Report Type: Spontaneous
  Country: PT (occurrence: PT)
  Receive Date: 20230928
  Receipt Date: 20240122
  Transmission Date: 20240410
  Serious: Yes (Other)
  Sender: FDA-Public Use
  Company Number: PT-SUN PHARMACEUTICAL INDUSTRIES LTD-2023R1-409766

PATIENT
  Age: 78 Year
  Sex: Male

DRUGS (1)
  1. CLOZAPINE [Suspect]
     Active Substance: CLOZAPINE
     Indication: Delusional disorder, unspecified type
     Dosage: 100 MILLIGRAM, DAILY
     Route: 065

REACTIONS (1)
  - Epilepsy [Unknown]
